FAERS Safety Report 6603593-9 (Version None)
Quarter: 2010Q1

REPORT INFORMATION
  Report Type: 
  Country: None (occurrence: None)
  Receive Date: 20100226
  Receipt Date: 20091109
  Transmission Date: 20100710
  Serious: No
  Sender: FDA-Public Use
  Company Number: A0816077A

PATIENT
  Age: 54 Year
  Sex: Female

DRUGS (2)
  1. VALTREX [Suspect]
     Dosage: 1G TWICE PER DAY
     Route: 048
     Dates: start: 20091105, end: 20091107
  2. NO CONCURRENT MEDICATION [Concomitant]

REACTIONS (8)
  - ERYTHEMA [None]
  - HEADACHE [None]
  - HYPERSENSITIVITY [None]
  - MALAISE [None]
  - PRURITUS [None]
  - RASH [None]
  - SKIN DISORDER [None]
  - URTICARIA [None]
